FAERS Safety Report 18382398 (Version 1)
Quarter: 2020Q4

REPORT INFORMATION
  Report Type: Spontaneous
  Country: CO (occurrence: CO)
  Receive Date: 20201014
  Receipt Date: 20201014
  Transmission Date: 20210114
  Serious: Yes (Other)
  Sender: FDA-Public Use
  Company Number: CO-PFIZER INC-2020388298

PATIENT
  Age: 37 Year
  Sex: Female

DRUGS (1)
  1. TOFACITINIB CITRATE [Suspect]
     Active Substance: TOFACITINIB CITRATE
     Indication: RHEUMATOID ARTHRITIS
     Dosage: 5 MG, 2X/DAY

REACTIONS (5)
  - Dysaesthesia [Recovered/Resolved]
  - Axonal neuropathy [Recovered/Resolved]
  - Muscle strength abnormal [Recovered/Resolved]
  - Asthenia [Recovered/Resolved]
  - Motor dysfunction [Recovered/Resolved]
